FAERS Safety Report 7517944-4 (Version None)
Quarter: 2011Q2

REPORT INFORMATION
  Report Type: 
  Country: None (occurrence: None)
  Receive Date: 20110527
  Receipt Date: 20110527
  Transmission Date: 20111010
  Serious: Yes (Hospitalization)
  Sender: FDA-Public Use
  Company Number: None

PATIENT
  Age: 62 Year
  Sex: Male
  Weight: 129.3 kg

DRUGS (2)
  1. INSULIN [Suspect]
     Indication: DIABETES MELLITUS
     Dosage: 46 UNITS SQ
     Route: 058
     Dates: start: 20090626
  2. INSULIN [Suspect]
     Indication: DIABETES MELLITUS
     Dosage: 2 UNITS SQ
     Route: 058
     Dates: start: 20090612

REACTIONS (1)
  - HYPOGLYCAEMIA [None]
